APPROVED DRUG PRODUCT: GUANFACINE HYDROCHLORIDE
Active Ingredient: GUANFACINE HYDROCHLORIDE
Strength: EQ 1MG BASE
Dosage Form/Route: TABLET;ORAL
Application: A074796 | Product #001 | TE Code: AB
Applicant: AUROBINDO PHARMA USA INC
Approved: Jan 27, 1997 | RLD: No | RS: No | Type: RX